FAERS Safety Report 9706475 (Version 1)
Quarter: 2013Q4

REPORT INFORMATION
  Report Type: Spontaneous
  Country: FR (occurrence: FR)
  Receive Date: 20131125
  Receipt Date: 20131125
  Transmission Date: 20140711
  Serious: Yes (Hospitalization)
  Sender: FDA-Public Use
  Company Number: FR-ROCHE-1305079

PATIENT
  Age: 32 Year
  Sex: Male
  Weight: 74 kg

DRUGS (6)
  1. ROCEPHINE [Suspect]
     Indication: MENINGITIS
     Dosage: DAILY DOSE 8G
     Route: 042
     Dates: start: 20131010, end: 20131011
  2. ZOVIRAX [Suspect]
     Indication: MENINGITIS
     Dosage: DAILY DOSE 2190 MG
     Route: 042
     Dates: start: 20131010, end: 20131011
  3. BI-PROFENID [Concomitant]
  4. PARACETAMOL [Concomitant]
     Route: 065
     Dates: start: 20131010
  5. THIOCOLCHICOSIDE [Concomitant]
  6. ZELITREX [Concomitant]

REACTIONS (1)
  - Renal failure acute [Recovered/Resolved]
